FAERS Safety Report 8357737-1 (Version None)
Quarter: 2012Q2

REPORT INFORMATION
  Report Type: 
  Country: None (occurrence: None)
  Receive Date: 20120511
  Receipt Date: 20120501
  Transmission Date: 20120825
  Serious: No
  Sender: FDA-Public Use
  Company Number: 2012SP022950

PATIENT
  Age: 60 Year
  Sex: Female

DRUGS (5)
  1. RIVASTIGMINE [Concomitant]
  2. SYCREST (ASENAPINE / 05706901/ ) (5 MG) [Suspect]
     Indication: BIPOLAR DISORDER
     Dosage: 5 MG;BID;SL, 5 MG;QD;SL
     Route: 060
     Dates: start: 20120301, end: 20120401
  3. LITHIUM CARBONATE [Concomitant]
  4. DEPAKENE [Concomitant]
  5. QUETIAPINE [Concomitant]

REACTIONS (1)
  - RASH [None]
